FAERS Safety Report 7916141-8 (Version None)
Quarter: 2011Q4

REPORT INFORMATION
  Report Type: 
  Country: None (occurrence: None)
  Receive Date: 20111116
  Receipt Date: 20111108
  Transmission Date: 20120403
  Serious: Yes (Hospitalization)
  Sender: FDA-Public Use
  Company Number: US-BIOGENIDEC-2011BI000119

PATIENT
  Age: 49 Year
  Sex: Female

DRUGS (4)
  1. PAIN PATCH (NOS) [Concomitant]
     Route: 023
  2. AVONEX [Suspect]
     Route: 030
     Dates: start: 20100429, end: 20110107
  3. AVONEX [Suspect]
     Indication: MULTIPLE SCLEROSIS
     Route: 030
     Dates: start: 20100401, end: 20100401
  4. AMPYRA [Concomitant]

REACTIONS (15)
  - NAUSEA [None]
  - OROPHARYNGEAL CANDIDIASIS [None]
  - VOMITING [None]
  - GASTROINTESTINAL DISORDER [None]
  - ASTHENIA [None]
  - FALL [None]
  - DEHYDRATION [None]
  - DYSPHAGIA [None]
  - SUTURE RUPTURE [None]
  - ABASIA [None]
  - PAIN IN EXTREMITY [None]
  - MULTIPLE SCLEROSIS RELAPSE [None]
  - OEDEMA PERIPHERAL [None]
  - URINARY TRACT INFECTION [None]
  - SYNOVIAL CYST [None]
